FAERS Safety Report 10565558 (Version 1)
Quarter: 2014Q4

REPORT INFORMATION
  Report Type: Spontaneous
  Country: US (occurrence: US)
  Receive Date: 20141105
  Receipt Date: 20141105
  Transmission Date: 20150529
  Serious: Yes (Hospitalization, Other)
  Sender: FDA-Public Use
  Company Number: US-GLAXOSMITHKLINE-US2014GSK015923

PATIENT
  Age: 56 Year
  Sex: Male

DRUGS (11)
  1. NORVASC [Concomitant]
     Active Substance: AMLODIPINE BESYLATE
  2. COREG [Concomitant]
     Active Substance: CARVEDILOL
  3. PREDNISONE. [Concomitant]
     Active Substance: PREDNISONE
  4. PROTONIX [Concomitant]
     Active Substance: PANTOPRAZOLE SODIUM
  5. ASPIRIN + CAFFEINE + SALICYLAMIDE [Concomitant]
  6. CRESTOR [Concomitant]
     Active Substance: ROSUVASTATIN CALCIUM
  7. LOVAZA [Suspect]
     Active Substance: OMEGA-3-ACID ETHYL ESTERS
     Indication: CARDIOVASCULAR EVENT PROPHYLAXIS
     Dosage: 2000 MG, BID
     Route: 048
     Dates: start: 2003, end: 20141007
  8. RAPAMUNE [Concomitant]
     Active Substance: SIROLIMUS
  9. CARDURA [Concomitant]
     Active Substance: DOXAZOSIN MESYLATE
  10. PLAVIX [Concomitant]
     Active Substance: CLOPIDOGREL BISULFATE
  11. PROGRAFT [Concomitant]
     Active Substance: TACROLIMUS

REACTIONS (7)
  - Gout [Not Recovered/Not Resolved]
  - Dyspnoea [Recovered/Resolved]
  - Pain [Not Recovered/Not Resolved]
  - Skin discolouration [Not Recovered/Not Resolved]
  - Pneumonia [Recovered/Resolved]
  - Blood uric acid increased [Not Recovered/Not Resolved]
  - Joint stiffness [Not Recovered/Not Resolved]

NARRATIVE: CASE EVENT DATE: 201310
